FAERS Safety Report 20390160 (Version 1)
Quarter: 2022Q1

REPORT INFORMATION
  Report Type: Spontaneous
  Country: US (occurrence: None)
  Receive Date: 20220128
  Receipt Date: 20220128
  Transmission Date: 20220423
  Serious: No
  Sender: FDA-Public Use
  Company Number: 2022A031010

PATIENT
  Age: 81 Year
  Sex: Male
  Weight: 92.5 kg

DRUGS (1)
  1. FARXIGA [Suspect]
     Active Substance: DAPAGLIFLOZIN PROPANEDIOL
     Indication: Type 2 diabetes mellitus
     Route: 048
     Dates: start: 20211227

REACTIONS (1)
  - Blood glucose fluctuation [Recovering/Resolving]

NARRATIVE: CASE EVENT DATE: 20220101
